FAERS Safety Report 7215075-4 (Version None)
Quarter: 2011Q1

REPORT INFORMATION
  Report Type: 
  Country: None (occurrence: None)
  Receive Date: 20110107
  Receipt Date: 20100810
  Transmission Date: 20110831
  Serious: No
  Sender: FDA-Public Use
  Company Number: A0874899A

PATIENT
  Age: 60 Year
  Sex: Male

DRUGS (3)
  1. AZOR (AMLODIPINE BESILATE + OLMESARTAN MEDOXOMIL) [Concomitant]
  2. LIPITOR [Concomitant]
  3. LOVAZA [Suspect]
     Dosage: 4G PER DAY
     Route: 048

REACTIONS (1)
  - DYSGEUSIA [None]
